FAERS Safety Report 4265900-4 (Version None)
Quarter: 2004Q1

REPORT INFORMATION
  Report Type: 
  Country: None (occurrence: None)
  Receive Date: 20040106
  Receipt Date: 20031224
  Transmission Date: 20041129
  Serious: Yes (Other)
  Sender: FDA-Public Use
  Company Number: 2003114569

PATIENT
  Sex: Male

DRUGS (7)
  1. ZOLOFT [Suspect]
     Indication: DEPRESSION
     Dosage: 150 MG (DAILY)
     Dates: end: 20030101
  2. DILANTIN [Suspect]
     Indication: CONVULSION
  3. VALPROATE SODIUM [Suspect]
     Indication: EATING DISORDER
  4. CLONAZEPAM [Suspect]
     Indication: ANXIETY
  5. PAROXETINE HCL [Suspect]
     Indication: ILL-DEFINED DISORDER
     Dates: start: 20020101, end: 20030101
  6. VENLAFAXINE HCL [Concomitant]
  7. FEXOFENADINE HYDROCHLORIDE [Concomitant]

REACTIONS (9)
  - ANXIETY [None]
  - CONVULSION [None]
  - DECREASED APPETITE [None]
  - DIARRHOEA [None]
  - DRUG RESISTANCE [None]
  - ENERGY INCREASED [None]
  - RASH [None]
  - SEXUAL DYSFUNCTION [None]
  - TREMOR [None]
